FAERS Safety Report 8244955-6 (Version None)
Quarter: 2012Q1

REPORT INFORMATION
  Report Type: 
  Country: None (occurrence: None)
  Receive Date: 20120329
  Receipt Date: 20111014
  Transmission Date: 20120608
  Serious: No
  Sender: FDA-Public Use
  Company Number: US-MYLANLABS-2011S1021414

PATIENT
  Age: 43 Year
  Sex: Male

DRUGS (2)
  1. FENTANYL-100 [Suspect]
     Indication: BACK PAIN
     Route: 062
     Dates: start: 20111011, end: 20111014
  2. HYDROCODONE BITARTRATE AND ACETAMINOPHEN [Concomitant]
     Indication: PAIN
     Dosage: 10/325MG
     Route: 048

REACTIONS (5)
  - PRURITUS [None]
  - VOMITING [None]
  - OEDEMA PERIPHERAL [None]
  - DIZZINESS [None]
  - FLUSHING [None]
